FAERS Safety Report 9960748 (Version 1)
Quarter: 2014Q1

REPORT INFORMATION
  Report Type: Report from Study
  Country: US (occurrence: US)
  Receive Date: 20140305
  Receipt Date: 20140305
  Transmission Date: 20141002
  Serious: No
  Sender: FDA-Public Use
  Company Number: US-ABBVIE-13P-163-1137224-00

PATIENT
  Age: 47 Year
  Sex: Female

DRUGS (2)
  1. HUMIRA [Suspect]
     Indication: RHEUMATOID ARTHRITIS
     Route: 058
     Dates: end: 20100911
  2. HUMIRA [Suspect]
     Dosage: DOSE INCREASED
     Route: 058
     Dates: start: 20110911, end: 20130619

REACTIONS (1)
  - Drug administration error [Unknown]
